FAERS Safety Report 8315687-0 (Version None)
Quarter: 2012Q2

REPORT INFORMATION
  Report Type: 
  Country: None (occurrence: None)
  Receive Date: 20120426
  Receipt Date: 20120423
  Transmission Date: 20120825
  Serious: Yes (Hospitalization)
  Sender: FDA-Public Use
  Company Number: PHHY2012DK006736

PATIENT
  Sex: Male
  Weight: 70 kg

DRUGS (7)
  1. DIAZEPAM [Suspect]
     Indication: DELIRIUM TREMENS
  2. THIAMINE HCL [Concomitant]
     Indication: WERNICKE'S ENCEPHALOPATHY
     Dates: start: 20120103
  3. HALOPERIDOL [Suspect]
     Indication: DELIRIUM
     Dosage: 20 MG, UNK
     Route: 042
     Dates: start: 20120103, end: 20120109
  4. HALOPERIDOL [Suspect]
     Indication: DELIRIUM TREMENS
  5. CHLORDIAZEPOXIDE [Suspect]
     Indication: ABSTAINS FROM ALCOHOL
     Dosage: 900 MG, UNK
     Route: 048
     Dates: start: 20120103, end: 20120109
  6. CHLORDIAZEPOXIDE [Suspect]
     Indication: DELIRIUM TREMENS
  7. DIAZEPAM [Suspect]
     Indication: ABSTAINS FROM ALCOHOL
     Dosage: 100 MG, UNK
     Route: 048
     Dates: start: 20120103, end: 20120109

REACTIONS (4)
  - RESPIRATORY ACIDOSIS [None]
  - RESPIRATORY FAILURE [None]
  - PNEUMONIA HAEMOPHILUS [None]
  - HYPERCAPNIA [None]
